FAERS Safety Report 11053033 (Version 2)
Quarter: 2015Q2

REPORT INFORMATION
  Report Type: Spontaneous
  Country: US (occurrence: US)
  Receive Date: 20150421
  Receipt Date: 20150525
  Transmission Date: 20150821
  Serious: Yes (Other)
  Sender: FDA-Public Use
  Company Number: US-JNJFOC-20130203076

PATIENT
  Age: 50 Year
  Sex: Male

DRUGS (2)
  1. RISPERDAL CONSTA [Suspect]
     Active Substance: RISPERIDONE
     Indication: PRODUCT USED FOR UNKNOWN INDICATION
     Route: 030
  2. RISPERDAL [Suspect]
     Active Substance: RISPERIDONE
     Indication: PRODUCT USED FOR UNKNOWN INDICATION
     Dosage: ONE TIME A DAY FOR 3 DAYS PRIOR TO EACH RISPERIDONE CONSTA DOSE
     Route: 048

REACTIONS (2)
  - Therapeutic response decreased [Recovered/Resolved]
  - Tardive dyskinesia [Not Recovered/Not Resolved]
